FAERS Safety Report 8885636 (Version 3)
Quarter: 2014Q2

REPORT INFORMATION
  Report Type: Report from Study
  Country: JP (occurrence: JP)
  Receive Date: 20121105
  Receipt Date: 20140424
  Transmission Date: 20141212
  Serious: No
  Sender: FDA-Public Use
  Company Number: PHHY2012JP099606

PATIENT
  Age: 76 Year
  Sex: Female

DRUGS (2)
  1. FTY 720 [Suspect]
     Indication: MULTIPLE SCLEROSIS
     Dosage: 0.5 MG, QD
     Route: 048
     Dates: start: 2012, end: 20121005
  2. BETAFERON [Concomitant]
     Route: 058
     Dates: end: 20121001

REACTIONS (3)
  - Malaise [Recovered/Resolved]
  - Feeling hot [Recovered/Resolved]
  - Visual impairment [Recovered/Resolved]
